FAERS Safety Report 14460266 (Version 1)
Quarter: 2018Q1

REPORT INFORMATION
  Report Type: Other
  Country: US (occurrence: US)
  Receive Date: 20180130
  Receipt Date: 20180130
  Transmission Date: 20180509
  Serious: No
  Sender: FDA-Public Use
  Company Number: US-ACORDA-ACO_139611_2017

PATIENT
  Age: 79 Year
  Sex: Female

DRUGS (1)
  1. AMPYRA [Suspect]
     Active Substance: DALFAMPRIDINE
     Indication: GAIT DISTURBANCE
     Dosage: UNK, ONE DAILY
     Route: 048
     Dates: start: 201610, end: 201704

REACTIONS (4)
  - Condition aggravated [Unknown]
  - Balance disorder [Unknown]
  - Inappropriate schedule of drug administration [Unknown]
  - Fall [Unknown]

NARRATIVE: CASE EVENT DATE: 201610
